FAERS Safety Report 23703133 (Version 2)
Quarter: 2024Q3

REPORT INFORMATION
  Report Type: Report from Study
  Country: BR (occurrence: BR)
  Receive Date: 20240403
  Receipt Date: 20240814
  Transmission Date: 20241016
  Serious: Yes (Other)
  Sender: NOVARTIS
  Company Number: BR-002147023-NVSC2023BR092410

PATIENT
  Sex: Female

DRUGS (6)
  1. KISQALI [Suspect]
     Active Substance: RIBOCICLIB
     Indication: Breast cancer
     Dosage: 300 MG
     Route: 065
     Dates: start: 20230418, end: 202311
  2. FEMARA [Suspect]
     Active Substance: LETROZOLE
     Indication: Product used for unknown indication
     Dosage: UNK
     Route: 065
  3. LETROZOLE [Concomitant]
     Active Substance: LETROZOLE
     Indication: Product used for unknown indication
     Dosage: UNK
     Route: 065
  4. FASTIN [Concomitant]
     Active Substance: PHENTERMINE HYDROCHLORIDE
     Indication: Product used for unknown indication
     Dosage: TWO WEEKLY AND THREE EVERY 20 DAYS
     Route: 065
  5. TAXOL [Concomitant]
     Active Substance: PACLITAXEL
     Indication: Product used for unknown indication
     Dosage: TWO WEEKLY AND THREE EVERY 20 DAYS
     Route: 065
  6. CARNABOL [Concomitant]
     Indication: Product used for unknown indication
     Dosage: TWO WEEKLY AND THREE EVERY 20 DAYS
     Route: 065

REACTIONS (18)
  - Cancer with a high tumour mutational burden [Unknown]
  - Platelet count decreased [Unknown]
  - Weight decreased [Unknown]
  - Swelling [Recovered/Resolved]
  - Headache [Recovered/Resolved]
  - Abdominal pain [Recovered/Resolved]
  - Constipation [Unknown]
  - Intercepted product prescribing error [Unknown]
  - Flatulence [Unknown]
  - Alopecia [Unknown]
  - Hypersensitivity [Unknown]
  - Vitiligo [Unknown]
  - Dysgeusia [Unknown]
  - Insomnia [Unknown]
  - Decreased immune responsiveness [Unknown]
  - Pruritus [Unknown]
  - Neoplasm progression [Unknown]
  - White blood cell count abnormal [Unknown]
